FAERS Safety Report 15460703 (Version 1)
Quarter: 2018Q4

REPORT INFORMATION
  Report Type: Spontaneous
  Country: FR (occurrence: FR)
  Receive Date: 20181003
  Receipt Date: 20181003
  Transmission Date: 20190204
  Serious: Yes (Hospitalization, Other)
  Sender: FDA-Public Use
  Company Number: PHHY2018FR107170

PATIENT
  Age: 75 Year
  Sex: Female
  Weight: 45 kg

DRUGS (5)
  1. AMPHOTERICIN B. [Concomitant]
     Active Substance: AMPHOTERICIN B
     Indication: PRODUCT USED FOR UNKNOWN INDICATION
  2. AMPHOTERICIN B, LIPOSOME [Suspect]
     Active Substance: AMPHOTERICIN B
     Indication: ASPERGILLUS INFECTION
     Route: 065
  3. VORICONAZOLE. [Suspect]
     Active Substance: VORICONAZOLE
     Indication: ASPERGILLUS INFECTION
     Dosage: 350 MG, BID
     Route: 065
  4. TACROLIMUS. [Suspect]
     Active Substance: TACROLIMUS
     Indication: RENAL TRANSPLANT
     Dosage: UNK
     Route: 065
  5. VORICONAZOLE. [Suspect]
     Active Substance: VORICONAZOLE
     Dosage: INFERIOR TO 1 MG/LITER
     Route: 065

REACTIONS (7)
  - Cerebral aspergillosis [Recovering/Resolving]
  - Treatment failure [Unknown]
  - Carotid artery aneurysm [Unknown]
  - Hemiparesis [Recovering/Resolving]
  - IIIrd nerve paralysis [Recovering/Resolving]
  - Acute sinusitis [Unknown]
  - Renal failure [Unknown]
